FAERS Safety Report 8185105-4 (Version None)
Quarter: 2012Q1

REPORT INFORMATION
  Report Type: 
  Country: None (occurrence: None)
  Receive Date: 20120305
  Receipt Date: 20120228
  Transmission Date: 20120608
  Serious: Yes (Death, Other)
  Sender: FDA-Public Use
  Company Number: CA-PFIZER INC-2009311565

PATIENT
  Sex: Male

DRUGS (5)
  1. MARIJUANA [Suspect]
     Route: 065
  2. MORPHINE SULFATE [Suspect]
     Dosage: UNK
     Route: 065
  3. ALCOHOL [Suspect]
     Route: 065
  4. CODEINE POLYSULFONATE [Suspect]
     Dosage: UNK
     Route: 065
  5. DIAZEPAM [Suspect]
     Route: 065

REACTIONS (3)
  - ASPIRATION [None]
  - SUBSTANCE ABUSE [None]
  - ALCOHOL POISONING [None]
